FAERS Safety Report 5781568-X (Version None)
Quarter: 2008Q2

REPORT INFORMATION
  Report Type: 
  Country: None (occurrence: None)
  Receive Date: 20080623
  Receipt Date: 20070608
  Transmission Date: 20081010
  Serious: No
  Sender: FDA-Public Use
  Company Number: US-ASTRAZENECA-2007UW13829

PATIENT
  Sex: Female

DRUGS (1)
  1. RHINOCORT [Suspect]
     Indication: EAR CONGESTION
     Route: 045
     Dates: start: 20070601

REACTIONS (2)
  - FEELING ABNORMAL [None]
  - NAUSEA [None]
